FAERS Safety Report 9250318 (Version 1)
Quarter: 2013Q2

REPORT INFORMATION
  Report Type: Spontaneous
  Country: US (occurrence: None)
  Receive Date: 20130419
  Receipt Date: 20130419
  Transmission Date: 20140414
  Serious: No
  Sender: FDA-Public Use
  Company Number: None

PATIENT
  Age: 86 Year
  Sex: Female
  Weight: 73.48 kg

DRUGS (2)
  1. PROLIA [Suspect]
     Indication: SENILE OSTEOPOROSIS
     Dosage: 60MG EVERY 6 MONTHS?SINGLE INJECTION
     Route: 058
     Dates: start: 20120403, end: 20120403
  2. PROLIA [Suspect]
     Indication: SENILE OSTEOPOROSIS
     Dosage: 60MG EVERY 6 MONTHS ?SINGLE INJECTION
     Route: 058
     Dates: start: 20131005, end: 20131005

REACTIONS (1)
  - Neutrophil count decreased [None]
